FAERS Safety Report 23071340 (Version 3)
Quarter: 2023Q4

REPORT INFORMATION
  Report Type: Spontaneous
  Country: JP (occurrence: JP)
  Receive Date: 20231016
  Receipt Date: 20231102
  Transmission Date: 20240110
  Serious: Yes (Hospitalization, Other)
  Sender: FDA-Public Use
  Company Number: None

PATIENT

DRUGS (1)
  1. SERETIDE [Suspect]
     Active Substance: FLUTICASONE PROPIONATE\SALMETEROL XINAFOATE
     Indication: Asthma
     Dosage: UNK

REACTIONS (8)
  - Eosinophilic granulomatosis with polyangiitis [Unknown]
  - Hypoaesthesia [Unknown]
  - Eosinophil count increased [Recovered/Resolved]
  - Neuropathy peripheral [Recovered/Resolved]
  - Fall [Unknown]
  - Peroneal nerve palsy [Unknown]
  - Foot fracture [Unknown]
  - Oedema peripheral [Unknown]
